FAERS Safety Report 17950417 (Version 1)
Quarter: 2020Q2

REPORT INFORMATION
  Report Type: Spontaneous
  Country: US (occurrence: US)
  Receive Date: 20200626
  Receipt Date: 20200626
  Transmission Date: 20200714
  Serious: Yes (Other)
  Sender: FDA-Public Use
  Company Number: US-SHIRE-US202020469

PATIENT
  Sex: Female

DRUGS (4)
  1. CEPROTIN [Suspect]
     Active Substance: PROTEIN C
     Indication: PROTEIN C DEFICIENCY
     Dosage: 3500 INTERNATIONAL UNIT
     Route: 051
  2. CEPROTIN [Suspect]
     Active Substance: PROTEIN C
     Dosage: 5500 INTERNATIONAL UNIT
     Route: 051
  3. CEPROTIN [Suspect]
     Active Substance: PROTEIN C
     Dosage: 500 INTERNATIONAL UNIT
     Route: 051
  4. CEPROTIN [Suspect]
     Active Substance: PROTEIN C
     Dosage: 1000 INTERNATIONAL UNIT
     Route: 051

REACTIONS (1)
  - Drug ineffective [Unknown]
